FAERS Safety Report 4925998-4 (Version None)
Quarter: 2006Q1

REPORT INFORMATION
  Report Type: 
  Country: None (occurrence: None)
  Receive Date: 20060228
  Receipt Date: 20050721
  Transmission Date: 20060701
  Serious: No
  Sender: FDA-Public Use
  Company Number: US-GLAXOSMITHKLINE-A0567188A

PATIENT
  Age: 15 Year
  Sex: Female
  Weight: 65.9 kg

DRUGS (4)
  1. LAMICTAL [Suspect]
     Indication: EPILEPSY
     Dosage: 100MG TWICE PER DAY
     Route: 048
  2. CALCIUM + VITAMIN D [Suspect]
     Dosage: 600MG TWICE PER DAY
     Route: 048
     Dates: end: 20050801
  3. TOPAMAX [Concomitant]
     Dosage: 75MG TWICE PER DAY
     Route: 048
     Dates: start: 20020101
  4. FOLIC ACID SUPPLEMENT [Concomitant]
     Dosage: 1G TWICE PER DAY
     Route: 048

REACTIONS (3)
  - CHEST PAIN [None]
  - MUSCLE SPASMS [None]
  - RASH [None]
